FAERS Safety Report 10673569 (Version 1)
Quarter: 2014Q4

REPORT INFORMATION
  Report Type: Spontaneous
  Country: IT (occurrence: None)
  Receive Date: 20141222
  Receipt Date: 20141222
  Transmission Date: 20150529
  Serious: Yes (Death)
  Sender: FDA-Public Use
  Company Number: INT_00557_2014

PATIENT
  Age: 68 Year
  Sex: Male

DRUGS (3)
  1. CISPLATIN (CISPLATIN) (HQ SPECIALTY) [Suspect]
     Active Substance: CISPLATIN
     Indication: NON-SMALL CELL LUNG CANCER
  2. PEMETREXED [Suspect]
     Active Substance: PEMETREXED
     Indication: NON-SMALL CELL LUNG CANCER
     Dosage: 1X/3 WEEKS, INFUSED OVER 10 MINUTES, UNTIL NOT CONTINUING
  3. BEVACIZUMAB (BEVACIZUMAB) [Suspect]
     Active Substance: BEVACIZUMAB
     Indication: NON-SMALL CELL LUNG CANCER
     Dosage: 1X/3 WEEKS, INFUSED OVER 30-90 MIN, UNTIL NOT CONTINUING

REACTIONS (2)
  - Gastrointestinal haemorrhage [None]
  - Thrombocytopenia [None]
